FAERS Safety Report 11782256 (Version 1)
Quarter: 2015Q4

REPORT INFORMATION
  Report Type: Spontaneous
  Country: SE (occurrence: SE)
  Receive Date: 20151127
  Receipt Date: 20151127
  Transmission Date: 20160305
  Serious: Yes (Disabling)
  Sender: FDA-Public Use
  Company Number: SE-ABBVIE-15K-150-1505976-00

PATIENT
  Age: 49 Year
  Sex: Female

DRUGS (5)
  1. HUMIRA [Suspect]
     Active Substance: ADALIMUMAB
     Dosage: 80 MG EVERY OTHER WEEK AND 40 MG EVERY OTHER WEEK
     Route: 058
     Dates: end: 201211
  2. ASACOL [Concomitant]
     Active Substance: MESALAMINE
     Indication: PRODUCT USED FOR UNKNOWN INDICATION
  3. HUMIRA [Suspect]
     Active Substance: ADALIMUMAB
     Indication: CROHN^S DISEASE
     Route: 058
     Dates: start: 20111214, end: 201202
  4. PREDNISOLONE. [Concomitant]
     Active Substance: PREDNISOLONE
     Indication: PRODUCT USED FOR UNKNOWN INDICATION
  5. HUMIRA [Suspect]
     Active Substance: ADALIMUMAB
     Dosage: 80 MG EVERY OTHER WEEK AND 40 MG EVERY OTHER WEEK
     Route: 058
     Dates: start: 201202

REACTIONS (6)
  - Myalgia [Not Recovered/Not Resolved]
  - Drug ineffective [Unknown]
  - Muscle mass [Not Recovered/Not Resolved]
  - Musculoskeletal discomfort [Not Recovered/Not Resolved]
  - Arthralgia [Unknown]
  - Pelvic pain [Unknown]

NARRATIVE: CASE EVENT DATE: 201112
